FAERS Safety Report 26092135 (Version 1)
Quarter: 2025Q4

REPORT INFORMATION
  Report Type: Spontaneous
  Country: CN (occurrence: CN)
  Receive Date: 20251126
  Receipt Date: 20251126
  Transmission Date: 20260118
  Serious: Yes (Other)
  Sender: BAYER HEALTHCARE PHARMACEUTICALS INC.
  Company Number: CN-BAYER-2025A155591

PATIENT
  Age: 61 Year
  Sex: Female

DRUGS (3)
  1. ULTRAVIST [Suspect]
     Active Substance: IOPROMIDE
     Indication: Computerised tomogram heart
     Dosage: 37 G, ONCE, HIGH PRESSURE INJECTION
     Route: 042
     Dates: start: 20251029, end: 20251029
  2. ULTRAVIST [Suspect]
     Active Substance: IOPROMIDE
     Indication: Pain in extremity
  3. ULTRAVIST [Suspect]
     Active Substance: IOPROMIDE
     Indication: Arthralgia

REACTIONS (3)
  - Sensation of foreign body [Recovering/Resolving]
  - Blood pressure systolic increased [None]
  - Respiratory rate increased [None]

NARRATIVE: CASE EVENT DATE: 20251029
